FAERS Safety Report 8563526-5 (Version None)
Quarter: 2012Q3

REPORT INFORMATION
  Report Type: 
  Country: None (occurrence: None)
  Receive Date: 20120802
  Receipt Date: 20120731
  Transmission Date: 20120928
  Serious: Yes (Other)
  Sender: FDA-Public Use
  Company Number: DE-AMGEN-DEUSP2012047628

PATIENT
  Sex: Female

DRUGS (1)
  1. PROLIA [Suspect]
     Indication: PRODUCT USED FOR UNKNOWN INDICATION
     Dosage: UNK UNK, Q6MO
     Dates: start: 20110301, end: 20120301

REACTIONS (4)
  - CYSTITIS NONINFECTIVE [None]
  - ABSCESS [None]
  - TOOTH EXTRACTION [None]
  - IMMUNODEFICIENCY [None]
